FAERS Safety Report 15281557 (Version 3)
Quarter: 2018Q4

REPORT INFORMATION
  Report Type: Spontaneous
  Country: DE (occurrence: DE)
  Receive Date: 20180815
  Receipt Date: 20181222
  Transmission Date: 20190204
  Serious: Yes (Hospitalization)
  Sender: FDA-Public Use
  Company Number: DE-BAYER-2018-148476

PATIENT
  Age: 17 Year
  Sex: Female
  Weight: 55 kg

DRUGS (8)
  1. NOVOPULMON [Concomitant]
     Active Substance: BUDESONIDE
     Indication: ASTHMA
     Dosage: 2 HUB PERMANENT MEDICATION
  2. VOMEX A [Concomitant]
     Active Substance: DIMENHYDRINATE
     Dosage: 100 MG, PRN
  3. SUMATRIPTAN. [Concomitant]
     Active Substance: SUMATRIPTAN
     Indication: MIGRAINE
     Dosage: 100 MG, PRN
  4. BOTOX [Concomitant]
     Active Substance: ONABOTULINUMTOXINA
     Indication: MIGRAINE WITH AURA
  5. VIGANTOLETTEN [Concomitant]
     Active Substance: CHOLECALCIFEROL
     Dosage: 1000 IU, 1-0-0
  6. DOTAREM [Suspect]
     Active Substance: GADOTERATE MEGLUMINE
     Indication: NUCLEAR MAGNETIC RESONANCE IMAGING
     Dosage: 11 ML
     Route: 042
  7. DYMISTA [Concomitant]
     Active Substance: AZELASTINE HYDROCHLORIDE\FLUTICASONE PROPIONATE
  8. GADOVIST [Suspect]
     Active Substance: GADOBUTROL
     Indication: NUCLEAR MAGNETIC RESONANCE IMAGING
     Dosage: 5 ML, ONCE
     Route: 042

REACTIONS (16)
  - Asthenia [Unknown]
  - Depressed mood [Not Recovered/Not Resolved]
  - Fatigue [Not Recovered/Not Resolved]
  - Urobilinogen urine increased [Unknown]
  - Pain in extremity [Recovering/Resolving]
  - Abdominal pain [Recovered/Resolved]
  - Impaired gastric emptying [Recovered/Resolved]
  - Nausea [Not Recovered/Not Resolved]
  - Transaminases increased [Recovered/Resolved]
  - Pyrexia [Recovered/Resolved]
  - Headache [Recovering/Resolving]
  - Vomiting [Recovered/Resolved]
  - Gastrooesophageal reflux disease [Recovered/Resolved]
  - Disturbance in attention [Not Recovered/Not Resolved]
  - Aphthous ulcer [Recovered/Resolved]
  - Sleep disorder [Not Recovered/Not Resolved]

NARRATIVE: CASE EVENT DATE: 20101020
